FAERS Safety Report 21232522 (Version 1)
Quarter: 2022Q3

REPORT INFORMATION
  Report Type: Spontaneous
  Country: FR (occurrence: FR)
  Receive Date: 20220819
  Receipt Date: 20220819
  Transmission Date: 20221027
  Serious: Yes (Other)
  Sender: FDA-Public Use
  Company Number: None

PATIENT
  Age: 34 Year
  Sex: Male

DRUGS (6)
  1. SERTRALINE HYDROCHLORIDE [Suspect]
     Active Substance: SERTRALINE HYDROCHLORIDE
     Indication: Mental disorder
     Dosage: 50 MG ,SERTRALINE (CHLORHYDRATE DE) , UNIT DOSE : 50 MG ,  THERAPY  END DATE : NASK
     Dates: start: 20220127
  2. VENLAFAXINE [Suspect]
     Active Substance: VENLAFAXINE HYDROCHLORIDE
     Indication: Mental disorder
     Dosage: 225 MILLIGRAM DAILY; 3 TIMES 75 MG IN THE MORNING (IN THE PROCESS OF BEING REDUCED) ,UNIT DOSE : 225
     Dates: start: 20220127
  3. RISPERDAL [Suspect]
     Active Substance: RISPERIDONE
     Indication: Mental disorder
     Dosage: DOSE INCREASE 4 MG/D INSTEAD OF 2MG/D , UNIT DOSE : 4 MG , FREQUENCY TIME : 1 DAY ,  THERAPY  END DA
     Dates: start: 20220127
  4. CYAMEMAZINE [Suspect]
     Active Substance: CYAMEMAZINE
     Indication: Mental disorder
     Dosage: 0.5 IN THE MORNING AND 0.5 AT NOON AND 1 AT BEDTIME , UNIT DOSE : 200 MG , FREQUENCY TIME : 1 DAY ,
     Dates: start: 20220127
  5. DAFALGAN [Concomitant]
     Active Substance: ACETAMINOPHEN
     Indication: Product used for unknown indication
  6. LORAZEPAM [Concomitant]
     Active Substance: LORAZEPAM
     Indication: Product used for unknown indication

REACTIONS (2)
  - Erectile dysfunction [Unknown]
  - Hyperprolactinaemia [Unknown]

NARRATIVE: CASE EVENT DATE: 20220207
